FAERS Safety Report 13693035 (Version 1)
Quarter: 2017Q2

REPORT INFORMATION
  Report Type: Spontaneous
  Country: DE (occurrence: DE)
  Receive Date: 20170627
  Receipt Date: 20170627
  Transmission Date: 20170830
  Serious: Yes (Congenital Anomaly, Other)
  Sender: FDA-Public Use
  Company Number: DE-SUN PHARMACEUTICAL INDUSTRIES LTD-2017RR-143940

PATIENT
  Age: 1 Day
  Sex: Male
  Weight: .28 kg

DRUGS (11)
  1. VITAMIN B12 [Concomitant]
     Active Substance: CYANOCOBALAMIN
     Indication: VITAMIN SUPPLEMENTATION
     Dosage: 1000 ?G, MONTHLY, SINCE 2014, AFTER BYPASS OPERATION, 0.-36.6. GESTATIONAL WEEK
     Route: 064
     Dates: start: 2014
  2. BEGRIPAL [Concomitant]
     Indication: IMMUNISATION
     Dosage: 25.1.-25.1. GESTATIONAL WEEK
     Route: 064
     Dates: start: 20160926, end: 20160926
  3. LAMOTRIGINE. [Suspect]
     Active Substance: LAMOTRIGINE
     Indication: BIPOLAR DISORDER
     Dosage: 150 MG, BID, 0.-36.6. GESTATIONAL WEEK
     Route: 064
     Dates: start: 20160403, end: 20161217
  4. IBUPROFEN. [Concomitant]
     Active Substance: IBUPROFEN
     Indication: PAIN
     Dosage: ON DEMAND; TRIMESTER: 2ND
     Route: 064
  5. CITALOPRAM [Suspect]
     Active Substance: CITALOPRAM HYDROBROMIDE
     Indication: BIPOLAR DISORDER
     Dosage: 20 MG, QD, 0-36.6 GESTATIONAL WEEK
     Route: 064
     Dates: start: 20160403, end: 20161217
  6. VALDOXAN [Suspect]
     Active Substance: AGOMELATINE
     Indication: BIPOLAR DISORDER
     Dosage: 25 MG, QD, 0.-36.6. GESTATIONAL WEEK
     Route: 064
     Dates: start: 20160403, end: 20161217
  7. IRON [Concomitant]
     Active Substance: IRON
     Indication: MINERAL SUPPLEMENTATION
     Dosage: 50 MG, QD, 50[MG/D]/SINCE 2014. AFTER GASTRIC BYPASS OPERATION; 0.-36.6 GESTATIONAL WEEK
     Route: 064
     Dates: start: 20160403, end: 20161217
  8. CALCIUM [Concomitant]
     Active Substance: CALCIUM
     Indication: MINERAL SUPPLEMENTATION
     Dosage: 1200 MG, DAILY, SINCE 2014. AFTER BYPASS OPERATION, 0.-36.6. GESTATIONAL WEEK
     Route: 064
     Dates: start: 20160403, end: 20161217
  9. L-THYROXIN [Concomitant]
     Active Substance: LEVOTHYROXINE SODIUM
     Indication: HYPOTHYROIDISM
     Dosage: 150[UG/D]/112UG/D UNTIL WEEK 12, THEN 150UG/D, 0.-36.6 GESTATIONAL WEEK
     Route: 064
     Dates: start: 20160403, end: 20161217
  10. OXYTOCIN. [Concomitant]
     Active Substance: OXYTOCIN
     Indication: LABOUR INDUCTION
     Dosage: 36.6.-36.6. GESTATIONAL WEEK
     Route: 064
     Dates: start: 20161217, end: 20161217
  11. FOLIO FORTE [Concomitant]
     Active Substance: FOLIC ACID\VITAMINS
     Indication: PROPHYLAXIS OF NEURAL TUBE DEFECT
     Dosage: 0.8 MG, DAILY, 1.5.-4.2.GESTATIONAL WEEK
     Route: 064

REACTIONS (2)
  - Haemangioma congenital [Recovering/Resolving]
  - Hyperbilirubinaemia neonatal [Recovered/Resolved]

NARRATIVE: CASE EVENT DATE: 20161217
